FAERS Safety Report 7005059-3 (Version None)
Quarter: 2010Q3

REPORT INFORMATION
  Report Type: 
  Country: None (occurrence: None)
  Receive Date: 20100917
  Receipt Date: 20100904
  Transmission Date: 20110219
  Serious: Yes (Hospitalization, Other)
  Sender: FDA-Public Use
  Company Number: 2010AP001912

PATIENT
  Age: 20 Year
  Sex: Male

DRUGS (2)
  1. SULFAMETTHOXAZOLE AND TRIMETHOPRIM [Suspect]
  2. DICLOFENAC SODIUM [Suspect]

REACTIONS (2)
  - DRUG RASH WITH EOSINOPHILIA AND SYSTEMIC SYMPTOMS [None]
  - HEPATITIS [None]
